FAERS Safety Report 23460295 (Version 1)
Quarter: 2024Q1

REPORT INFORMATION
  Report Type: Spontaneous
  Country: CN (occurrence: CN)
  Receive Date: 20240131
  Receipt Date: 20240131
  Transmission Date: 20240410
  Serious: Yes (Other)
  Sender: FDA-Public Use
  Company Number: None

PATIENT
  Age: 70 Year
  Sex: Female
  Weight: 55 kg

DRUGS (19)
  1. CYCLOPHOSPHAMIDE [Suspect]
     Active Substance: CYCLOPHOSPHAMIDE
     Indication: Haemophagocytic lymphohistiocytosis
     Dosage: 1 G, ONE TIME IN ONE DAY, DILUTED WITH 500 ML OF 0.9% SODIUM CHLORIDE (NS)
     Route: 041
     Dates: start: 20240114, end: 20240114
  2. CYCLOPHOSPHAMIDE [Suspect]
     Active Substance: CYCLOPHOSPHAMIDE
     Indication: B-cell lymphoma
  3. CYCLOPHOSPHAMIDE [Suspect]
     Active Substance: CYCLOPHOSPHAMIDE
     Indication: Lymphoproliferative disorder
  4. CYCLOPHOSPHAMIDE [Suspect]
     Active Substance: CYCLOPHOSPHAMIDE
     Indication: Chemotherapy
  5. CYCLOPHOSPHAMIDE [Suspect]
     Active Substance: CYCLOPHOSPHAMIDE
     Indication: Neoplasm malignant
  6. SODIUM CHLORIDE [Suspect]
     Active Substance: SODIUM CHLORIDE
     Indication: Medication dilution
     Dosage: 0.9% 500 ML, ONE TIME IN ONE DAY, USED TO DILUTE 0.1 G OF ETOPOSIDE, DOSAGE FORM: INJECTION
     Route: 041
     Dates: start: 20240112, end: 20240112
  7. SODIUM CHLORIDE [Suspect]
     Active Substance: SODIUM CHLORIDE
     Dosage: 0.9% 500 ML, ONE TIME IN ONE DAY, USED TO DILUTE 1 G OF CYCLOPHOSPHAMIDE, DOSAGE FORM: INJECTION
     Route: 041
     Dates: start: 20240114, end: 20240114
  8. SODIUM CHLORIDE [Suspect]
     Active Substance: SODIUM CHLORIDE
     Dosage: 0.9% 20 ML, ONE TIME IN ONE DAY, USED TO DILUTE 4 MG OF VINDESINE SULFATE, DOSAGE FORM: INJECTION
     Route: 041
     Dates: start: 20240114, end: 20240114
  9. SODIUM CHLORIDE [Suspect]
     Active Substance: SODIUM CHLORIDE
     Dosage: 0.9% 500 ML, ONE TIME IN ONE DAY, USED TO DILUTE 0.1 G OF ETOPOSIDE, DOSAGE FORM: INJECTION
     Route: 041
     Dates: start: 20240116, end: 20240116
  10. ETOPOSIDE [Suspect]
     Active Substance: ETOPOSIDE
     Indication: Haemophagocytic lymphohistiocytosis
     Dosage: 0.1 G, ONE TIME IN ONE DAY, DILUTED WITH 500 ML OF 0.9% SODIUM CHLORIDE (NS)
     Route: 041
     Dates: start: 20240112, end: 20240112
  11. ETOPOSIDE [Suspect]
     Active Substance: ETOPOSIDE
     Indication: Lymphoproliferative disorder
     Dosage: 0.1 G, ONE TIME IN ONE DAY, DILUTED WITH 500 ML OF 0.9% SODIUM CHLORIDE (NS)
     Route: 041
     Dates: start: 20240116, end: 20240116
  12. ETOPOSIDE [Suspect]
     Active Substance: ETOPOSIDE
     Indication: B-cell lymphoma
  13. ETOPOSIDE [Suspect]
     Active Substance: ETOPOSIDE
     Indication: Chemotherapy
  14. ETOPOSIDE [Suspect]
     Active Substance: ETOPOSIDE
     Indication: Neoplasm malignant
  15. VINDESINE SULFATE [Suspect]
     Active Substance: VINDESINE SULFATE
     Indication: Haemophagocytic lymphohistiocytosis
     Dosage: 4 MG, ONE TIME IN ONE DAY, DILUTED WITH 20 ML OF 0.9% SODIUM CHLORIDE (NS)
     Route: 041
     Dates: start: 20240114, end: 20240114
  16. VINDESINE SULFATE [Suspect]
     Active Substance: VINDESINE SULFATE
     Indication: B-cell lymphoma
  17. VINDESINE SULFATE [Suspect]
     Active Substance: VINDESINE SULFATE
     Indication: Lymphoproliferative disorder
  18. VINDESINE SULFATE [Suspect]
     Active Substance: VINDESINE SULFATE
     Indication: Chemotherapy
  19. VINDESINE SULFATE [Suspect]
     Active Substance: VINDESINE SULFATE
     Indication: Neoplasm malignant

REACTIONS (8)
  - Lymphoproliferative disorder [Unknown]
  - Haemophagocytic lymphohistiocytosis [Unknown]
  - Neoplasm malignant [Unknown]
  - Condition aggravated [Unknown]
  - Myelosuppression [Recovering/Resolving]
  - Agranulocytosis [Recovering/Resolving]
  - Leukopenia [Recovering/Resolving]
  - B-cell lymphoma [Unknown]

NARRATIVE: CASE EVENT DATE: 20240118
